FAERS Safety Report 5420943-X (Version None)
Quarter: 2007Q3

REPORT INFORMATION
  Report Type: 
  Country: None (occurrence: None)
  Receive Date: 20070817
  Receipt Date: 20070817
  Transmission Date: 20080115
  Serious: Yes (Hospitalization)
  Sender: FDA-Public Use
  Company Number: None

PATIENT
  Sex: Female
  Weight: 59 kg

DRUGS (5)
  1. TEMOZOLOMIDE [Suspect]
     Indication: METASTATIC MALIGNANT MELANOMA
     Dosage: 160MG, QD X 7, QO WEEK
     Dates: start: 20070228, end: 20070705
  2. SUNITINIB MALATE, 25MG, PFIZER [Suspect]
     Indication: METASTATIC MALIGNANT MELANOMA
     Dosage: 25MG, D8 - 28, Q28D
     Dates: start: 20070307, end: 20070705
  3. LOTREL [Concomitant]
  4. ONDANSETRON [Concomitant]
  5. METAMUCIL [Concomitant]

REACTIONS (2)
  - DIARRHOEA [None]
  - DIVERTICULITIS [None]
